FAERS Safety Report 24141778 (Version 1)
Quarter: 2024Q3

REPORT INFORMATION
  Report Type: Spontaneous
  Country: CN (occurrence: CN)
  Receive Date: 20240726
  Receipt Date: 20240726
  Transmission Date: 20241016
  Serious: Yes (Life-Threatening)
  Sender: BAXTER
  Company Number: None

PATIENT
  Age: 55 Year
  Sex: Female
  Weight: 64 kg

DRUGS (8)
  1. CYCLOPHOSPHAMIDE [Suspect]
     Active Substance: CYCLOPHOSPHAMIDE
     Indication: Breast cancer female
     Dosage: 950 MG, ONE TIME IN ONE DAY (ST), DILUTED WITH 100 ML OF 0.9% SODIUM CHLORIDE
     Route: 041
     Dates: start: 20240624, end: 20240624
  2. CYCLOPHOSPHAMIDE [Suspect]
     Active Substance: CYCLOPHOSPHAMIDE
     Indication: Chemotherapy
  3. CYCLOPHOSPHAMIDE [Suspect]
     Active Substance: CYCLOPHOSPHAMIDE
     Indication: Neoplasm
  4. SODIUM CHLORIDE [Suspect]
     Active Substance: SODIUM CHLORIDE
     Indication: Medication dilution
     Dosage: 100 ML, ONE TIME IN ONE DAY, USED TO DILUTE 950 MG OF CYCLOPHOSPHAMIDE
     Route: 041
     Dates: start: 20240624, end: 20240624
  5. DEXTROSE [Suspect]
     Active Substance: DEXTROSE\DEXTROSE MONOHYDRATE
     Indication: Medication dilution
     Dosage: 100 ML, ONE TIME IN ONE DAY, USED TO DILUTE 80 MG OF PIRARUBICIN HYDROCHLORIDE
     Route: 041
     Dates: start: 20240624, end: 20240624
  6. PIRARUBICIN HYDROCHLORIDE [Suspect]
     Active Substance: PIRARUBICIN HYDROCHLORIDE
     Indication: Breast cancer female
     Dosage: 80 MG, ONE TIME IN ONE DAY (ST), DILUTED WITH 100 ML OF 5% GLUCOSE
     Route: 041
     Dates: start: 20240624, end: 20240624
  7. PIRARUBICIN HYDROCHLORIDE [Suspect]
     Active Substance: PIRARUBICIN HYDROCHLORIDE
     Indication: Chemotherapy
  8. PIRARUBICIN HYDROCHLORIDE [Suspect]
     Active Substance: PIRARUBICIN HYDROCHLORIDE
     Indication: Neoplasm

REACTIONS (2)
  - Hepatic function abnormal [Unknown]
  - Transaminases increased [Recovering/Resolving]

NARRATIVE: CASE EVENT DATE: 20240714
